FAERS Safety Report 18961037 (Version 2)
Quarter: 2021Q1

REPORT INFORMATION
  Report Type: Spontaneous
  Country: US (occurrence: US)
  Receive Date: 20210303
  Receipt Date: 20210326
  Transmission Date: 20210420
  Serious: No
  Sender: FDA-Public Use
  Company Number: US-ASTRAZENECA-2021A080977

PATIENT
  Sex: Male
  Weight: 133.8 kg

DRUGS (3)
  1. BYDUREON BCISE [Suspect]
     Active Substance: EXENATIDE
     Indication: TYPE 2 DIABETES MELLITUS
     Route: 058
     Dates: start: 20210212
  2. INSULIN [Concomitant]
     Active Substance: INSULIN NOS
     Dosage: USED LESS INSULIN
  3. INSULIN [Concomitant]
     Active Substance: INSULIN NOS
     Dosage: HAD TO INCREASE HIS INSULIN DOSE

REACTIONS (4)
  - Blood glucose increased [Unknown]
  - Injection site haemorrhage [Unknown]
  - Incorrect dose administered by device [Unknown]
  - Device leakage [Unknown]
